FAERS Safety Report 9159965 (Version 2)
Quarter: 2013Q2

REPORT INFORMATION
  Report Type: Spontaneous
  Country: US (occurrence: US)
  Receive Date: 20130313
  Receipt Date: 20130508
  Transmission Date: 20140414
  Serious: Yes (Hospitalization, Other)
  Sender: FDA-Public Use
  Company Number: US-BAYER-2013-029509

PATIENT
  Age: 46 Year
  Sex: Male
  Weight: 93 kg

DRUGS (2)
  1. BAYER ASPIRIN REGIMEN ADULT LOW STRENGTH [Suspect]
     Indication: PROPHYLAXIS
     Dosage: UNK UNK, OM
  2. BAYER ASPIRIN REGIMEN ADULT LOW STRENGTH [Suspect]
     Indication: PROPHYLAXIS
     Dosage: 1 DF, QD

REACTIONS (2)
  - Renal cancer [Recovered/Resolved]
  - Haemorrhage [Recovered/Resolved]
